FAERS Safety Report 4422195-6 (Version None)
Quarter: 2004Q3

REPORT INFORMATION
  Report Type: 
  Country: None (occurrence: None)
  Receive Date: 20040810
  Receipt Date: 20040728
  Transmission Date: 20050211
  Serious: Yes (Other)
  Sender: FDA-Public Use
  Company Number: GR-JNJFOC-20040707550

PATIENT
  Age: 36 Year
  Sex: Female

DRUGS (5)
  1. FENTANYL-TTS [Suspect]
     Route: 049
  2. FENTANYL-TTS [Suspect]
     Route: 049
  3. FENTANYL-TTS [Suspect]
     Indication: PAIN
     Route: 049
  4. PROPOXYPHEN [Concomitant]
  5. PAROXETINE HCL [Concomitant]

REACTIONS (9)
  - DRUG DEPENDENCE [None]
  - DRUG EFFECT DECREASED [None]
  - DRUG TOLERANCE [None]
  - DYSTHYMIC DISORDER [None]
  - FATIGUE [None]
  - INTENTIONAL MISUSE [None]
  - MEDICATION ERROR [None]
  - PHARMACEUTICAL PRODUCT COMPLAINT [None]
  - SOMNOLENCE [None]
